FAERS Safety Report 8271650 (Version 3)
Quarter: 2013Q1

REPORT INFORMATION
  Report Type: Spontaneous
  Country: US (occurrence: US)
  Receive Date: 20111201
  Receipt Date: 20130211
  Transmission Date: 20140127
  Serious: Yes (Hospitalization)
  Sender: FDA-Public Use
  Company Number: US-ASTRAZENECA-2011SE64146

PATIENT
  Age: 48 Year
  Sex: Female

DRUGS (2)
  1. CRESTOR [Suspect]
     Indication: BLOOD CHOLESTEROL ABNORMAL
     Route: 048
  2. CRESTOR [Suspect]
     Indication: BLOOD CHOLESTEROL ABNORMAL
     Route: 048

REACTIONS (7)
  - Gastrooesophageal reflux disease [Unknown]
  - Malaise [Unknown]
  - Stress [Unknown]
  - Tachyphrenia [Unknown]
  - Crying [Unknown]
  - Intentional drug misuse [Unknown]
  - Drug dose omission [Unknown]
